FAERS Safety Report 7529002-3 (Version None)
Quarter: 2011Q2

REPORT INFORMATION
  Report Type: 
  Country: None (occurrence: None)
  Receive Date: 20110607
  Receipt Date: 20110531
  Transmission Date: 20111010
  Serious: Yes (Other)
  Sender: FDA-Public Use
  Company Number: NO-B.I. PHARMACEUTICALS,INC./RIDGEFIELD-2011-SW-00231NO

PATIENT
  Sex: Male

DRUGS (13)
  1. DAIVONEX [Concomitant]
     Dosage: 2 RT
     Route: 061
  2. NITROGLYCERIN NYCOMED [Concomitant]
     Indication: ANGINA PECTORIS
     Dosage: 1 TABLET WHEN NEEDED
     Route: 060
  3. ELOCON [Concomitant]
     Dosage: 1 RT
     Route: 061
  4. VENTOLIN [Concomitant]
     Dosage: 4 RT
  5. VESICARE [Concomitant]
     Dosage: 10 MG
     Route: 048
  6. METFORMIN HCL [Concomitant]
     Dosage: 1000 MG
     Route: 048
  7. SERETIDE DISCUS [Concomitant]
     Dosage: 2 RT
  8. SIMVASTATIN [Concomitant]
     Indication: HYPERCHOLESTEROLAEMIA
     Dosage: 10 MG
     Route: 048
  9. APROVEL [Concomitant]
     Indication: HYPERTENSION
     Dosage: 300 MG
     Route: 048
  10. TRILAFON [Concomitant]
     Dosage: 0.0357 ML
     Route: 030
  11. PARACET [Concomitant]
     Dosage: 2 G
     Route: 048
  12. SPIRIVA [Suspect]
     Indication: CHRONIC OBSTRUCTIVE PULMONARY DISEASE
     Dosage: 18 MG
     Dates: start: 20081230, end: 20090801
  13. ASPIRIN [Concomitant]
     Dosage: 75 MG
     Route: 048

REACTIONS (1)
  - SUBCUTANEOUS HAEMATOMA [None]
